FAERS Safety Report 7796193-9 (Version None)
Quarter: 2011Q4

REPORT INFORMATION
  Report Type: 
  Country: None (occurrence: None)
  Receive Date: 20111004
  Receipt Date: 20110927
  Transmission Date: 20120403
  Serious: Yes (Hospitalization)
  Sender: FDA-Public Use
  Company Number: US-GILEAD-2011-0044433

PATIENT

DRUGS (4)
  1. TRUVADA [Suspect]
     Indication: HIV INFECTION
     Dosage: UNK
     Dates: end: 20110901
  2. KALETRA [Concomitant]
     Indication: HIV INFECTION
     Dosage: UNK
     Dates: end: 20110809
  3. OTHER ANTIVIRALS [Concomitant]
     Indication: HIV INFECTION
     Dosage: UNK
     Dates: start: 20110809, end: 20110901
  4. REMERON [Concomitant]
     Indication: PRODUCT USED FOR UNKNOWN INDICATION
     Dosage: UNK

REACTIONS (1)
  - PSYCHOTIC DISORDER [None]
